FAERS Safety Report 14072013 (Version 2)
Quarter: 2018Q1

REPORT INFORMATION
  Report Type: Spontaneous
  Country: US (occurrence: US)
  Receive Date: 20171010
  Receipt Date: 20180105
  Transmission Date: 20180508
  Serious: No
  Sender: FDA-Public Use
  Company Number: US-SA-2017SA154169

PATIENT
  Age: 61 Year
  Sex: Male

DRUGS (2)
  1. DUPIXENT [Suspect]
     Active Substance: DUPILUMAB
     Indication: DERMATITIS ATOPIC
     Route: 058
  2. DUPIXENT [Suspect]
     Active Substance: DUPILUMAB
     Indication: DERMATITIS ATOPIC
     Dosage: 2X 300 MG SHOTS
     Route: 058
     Dates: start: 20170727, end: 20170727

REACTIONS (2)
  - Pain in extremity [Recovered/Resolved]
  - Arthralgia [Recovered/Resolved]

NARRATIVE: CASE EVENT DATE: 201708
